FAERS Safety Report 14871613 (Version 2)
Quarter: 2018Q3

REPORT INFORMATION
  Report Type: Spontaneous
  Country: NO (occurrence: NO)
  Receive Date: 20180509
  Receipt Date: 20180706
  Transmission Date: 20181010
  Serious: Yes (Other)
  Sender: FDA-Public Use
  Company Number: NO-ELI_LILLY_AND_COMPANY-NO201804015054

PATIENT
  Age: 14 Year
  Sex: Female

DRUGS (2)
  1. STRATTERA [Suspect]
     Active Substance: ATOMOXETINE HYDROCHLORIDE
     Dosage: 40 MG, DAILY
     Route: 065
  2. STRATTERA [Suspect]
     Active Substance: ATOMOXETINE HYDROCHLORIDE
     Indication: PRODUCT USED FOR UNKNOWN INDICATION
     Dosage: 28 MG, DAILY
     Route: 065

REACTIONS (10)
  - Intentional self-injury [Unknown]
  - Aggression [Unknown]
  - Irritability [Unknown]
  - Suicidal ideation [Unknown]
  - Decreased eye contact [Unknown]
  - Speech disorder [Unknown]
  - Inappropriate schedule of drug administration [Unknown]
  - Akathisia [Unknown]
  - Constipation [Unknown]
  - Anxiety [Unknown]
